FAERS Safety Report 16454054 (Version 1)
Quarter: 2019Q2

REPORT INFORMATION
  Report Type: Spontaneous
  Country: CZ (occurrence: CZ)
  Receive Date: 20190620
  Receipt Date: 20190620
  Transmission Date: 20190711
  Serious: Yes (Hospitalization)
  Sender: FDA-Public Use
  Company Number: CZ-EMD SERONO-E2B_90068460

PATIENT
  Age: 34 Year
  Sex: Female

DRUGS (2)
  1. GONAL-F [Suspect]
     Active Substance: FOLLITROPIN
     Indication: INFERTILITY
     Dosage: DOSING FOR 11 DAYS 150IU 1X PER DAY, A TOTAL OF 1650 IU ADMINISTERED FOR 11 DAYS
     Route: 058
     Dates: start: 20190425, end: 20190505
  2. DIPHERELINE [Concomitant]
     Active Substance: TRIPTORELIN ACETATE
     Indication: INFERTILITY
     Dosage: LONG STIMULATION PROTOCOL OF THE LUTEAL PHASE
     Route: 058
     Dates: start: 20190418, end: 20190505

REACTIONS (5)
  - Dyspnoea [Recovered/Resolved]
  - Ovarian hyperstimulation syndrome [Recovered/Resolved]
  - Dyspepsia [Recovered/Resolved]
  - Vomiting [Recovered/Resolved]
  - Nausea [Recovered/Resolved]

NARRATIVE: CASE EVENT DATE: 20190509
